FAERS Safety Report 10233628 (Version 4)
Quarter: 2015Q1

REPORT INFORMATION
  Report Type: Spontaneous
  Country: US (occurrence: US)
  Receive Date: 20140612
  Receipt Date: 20150209
  Transmission Date: 20150720
  Serious: Yes (Hospitalization, Disabling)
  Sender: FDA-Public Use
  Company Number: US-BAYER-2014-086570

PATIENT
  Age: 25 Year
  Sex: Female
  Weight: 73 kg

DRUGS (1)
  1. MIRENA [Suspect]
     Active Substance: LEVONORGESTREL
     Indication: CONTRACEPTION
     Dosage: 20 MCG/24HR, CONT
     Route: 015
     Dates: start: 20120119, end: 20130611

REACTIONS (15)
  - General physical health deterioration [Not Recovered/Not Resolved]
  - Vaginal haemorrhage [None]
  - Abdominal pain upper [Not Recovered/Not Resolved]
  - Uterine perforation [Not Recovered/Not Resolved]
  - Anhedonia [Not Recovered/Not Resolved]
  - Pelvic pain [Not Recovered/Not Resolved]
  - Off label use [None]
  - Vulvovaginal pain [Not Recovered/Not Resolved]
  - Depression [None]
  - Pain [None]
  - Anxiety [None]
  - Injury [Not Recovered/Not Resolved]
  - Device issue [None]
  - Emotional distress [None]
  - Deformity [None]

NARRATIVE: CASE EVENT DATE: 201201
